FAERS Safety Report 4948069-X (Version None)
Quarter: 2006Q1

REPORT INFORMATION
  Report Type: 
  Country: None (occurrence: None)
  Receive Date: 20060313
  Receipt Date: 20060223
  Transmission Date: 20060701
  Serious: Yes (Hospitalization)
  Sender: FDA-Public Use
  Company Number: 06H-056-0305902-00

PATIENT
  Age: 23 Year
  Sex: Male

DRUGS (4)
  1. PENTOTHAL [Suspect]
     Dates: start: 20051218, end: 20051227
  2. ACETAMINOPHEN [Suspect]
     Dosage: PER ORAL
     Route: 048
     Dates: start: 20051224, end: 20060102
  3. PHENOBARBITAL TAB [Suspect]
     Dosage: PER ORAL
     Route: 048
     Dates: start: 20051217, end: 20060106
  4. ENOXAPARIN SODIUM [Suspect]
     Dosage: SUBCUTANEOUS
     Route: 058
     Dates: start: 20060102, end: 20060114

REACTIONS (6)
  - AGRANULOCYTOSIS [None]
  - BLISTER [None]
  - CYTOLYTIC HEPATITIS [None]
  - NEUTROPENIA [None]
  - PYREXIA [None]
  - RASH [None]
